FAERS Safety Report 4875695-9 (Version None)
Quarter: 2006Q1

REPORT INFORMATION
  Report Type: 
  Country: None (occurrence: None)
  Receive Date: 20060105
  Receipt Date: 20051220
  Transmission Date: 20060701
  Serious: Yes (Hospitalization)
  Sender: FDA-Public Use
  Company Number: B0404279A

PATIENT
  Age: 62 Year
  Sex: Female
  Weight: 64.8644 kg

DRUGS (1)
  1. VALTREX [Suspect]
     Indication: CHEST PAIN
     Dosage: 1 GRAM(S) / THREE TIMES PER DAY /

REACTIONS (6)
  - COMA [None]
  - DRUG TOXICITY [None]
  - NEUROTOXICITY [None]
  - POLYURIA [None]
  - RENAL FAILURE ACUTE [None]
  - STATUS EPILEPTICUS [None]
